FAERS Safety Report 25595531 (Version 2)
Quarter: 2025Q4

REPORT INFORMATION
  Report Type: Spontaneous
  Country: KR (occurrence: KR)
  Receive Date: 20250723
  Receipt Date: 20251006
  Transmission Date: 20260117
  Serious: Yes (Other)
  Sender: ALEXION PHARMACEUTICALS
  Company Number: KR-AstraZeneca-CH-00865362A

PATIENT
  Sex: Female
  Weight: 47 kg

DRUGS (1)
  1. ULTOMIRIS [Suspect]
     Active Substance: RAVULIZUMAB-CWVZ
     Indication: Paroxysmal nocturnal haemoglobinuria
     Dosage: UNK UNK, Q8W

REACTIONS (6)
  - Haemoglobin decreased [Unknown]
  - Extravascular haemolysis [Unknown]
  - Fatigue [Unknown]
  - Anaemia [Unknown]
  - Autoimmune haemolytic anaemia [Unknown]
  - Underdose [Unknown]
